FAERS Safety Report 12977614 (Version 2)
Quarter: 2016Q4

REPORT INFORMATION
  Report Type: Report from Study
  Country: US (occurrence: US)
  Receive Date: 20161128
  Receipt Date: 20161221
  Transmission Date: 20170207
  Serious: Yes (Hospitalization, Other)
  Sender: FDA-Public Use
  Company Number: US-AMGEN-USASL2016166254

PATIENT
  Age: 73 Year
  Sex: Female

DRUGS (1)
  1. ENBREL [Suspect]
     Active Substance: ETANERCEPT
     Indication: PSORIASIS
     Dosage: UNK, 2 TIMES/WK
     Route: 065

REACTIONS (9)
  - Atrial fibrillation [Unknown]
  - Colitis [Unknown]
  - Pneumonia [Unknown]
  - Syncope [Unknown]
  - Gastroenteritis [Unknown]
  - Implantable cardiac monitor insertion [Unknown]
  - Therapy non-responder [Unknown]
  - Pancreatitis [Unknown]
  - Diverticulitis [Unknown]

NARRATIVE: CASE EVENT DATE: 2016
